FAERS Safety Report 6791133-3 (Version None)
Quarter: 2010Q2

REPORT INFORMATION
  Report Type: 
  Country: None (occurrence: None)
  Receive Date: 20100624
  Receipt Date: 20100617
  Transmission Date: 20101027
  Serious: Yes (Other)
  Sender: FDA-Public Use
  Company Number: US-ELI_LILLY_AND_COMPANY-US201005000701

PATIENT
  Sex: Male

DRUGS (8)
  1. BYETTA [Suspect]
     Indication: TYPE 2 DIABETES MELLITUS
     Dosage: 5 UG, 2/D
     Route: 058
     Dates: start: 20100225, end: 20100505
  2. LEVOTHYROXINE [Concomitant]
  3. METHADONE [Concomitant]
     Dosage: 10 MG, UNK
  4. XANAX [Concomitant]
     Dosage: 1 MG, UNK
  5. DIAZEPAM [Concomitant]
     Dosage: 10 MG, UNK
  6. ACTOS /SCH/ [Concomitant]
     Dosage: 15 MG, UNK
  7. HUMALOG [Concomitant]
     Dosage: UNK, AS NEEDED
  8. LANTUS [Concomitant]

REACTIONS (4)
  - ACUTE MYELOID LEUKAEMIA [None]
  - ARTHRALGIA [None]
  - CHROMATURIA [None]
  - OFF LABEL USE [None]
